FAERS Safety Report 7804771 (Version 5)
Quarter: 2012Q4

REPORT INFORMATION
  Report Type: Report from Study
  Country: FR (occurrence: FR)
  Receive Date: 20110208
  Receipt Date: 20120904
  Transmission Date: 20130627
  Serious: Yes (Hospitalization)
  Sender: FDA-Public Use
  Company Number: FR-B.I. PHARMACEUTICALS,INC./RIDGEFIELD-2011-FF-00092FF

PATIENT
  Age: 77 Year
  Sex: Female
  Weight: 73 kg

DRUGS (5)
  1. PRADAXA [Suspect]
     Indication: THROMBOSIS PROPHYLAXIS
     Dosage: 150 mg
     Route: 048
     Dates: start: 20110125, end: 20110130
  2. TOPALGIC [Concomitant]
     Dosage: 300 mg
     Route: 048
     Dates: start: 20110126
  3. DAFALGAN [Concomitant]
     Dosage: 3000 mg
     Route: 048
     Dates: start: 20110126
  4. AMLOR [Concomitant]
     Dosage: 5 mg
     Route: 048
     Dates: start: 20110125
  5. TAHOR [Concomitant]
     Route: 048
     Dates: start: 20110125

REACTIONS (2)
  - Deep vein thrombosis [Recovered/Resolved]
  - Thrombophlebitis superficial [Recovered/Resolved]
